FAERS Safety Report 17298115 (Version 1)
Quarter: 2020Q1

REPORT INFORMATION
  Report Type: Spontaneous
  Country: US (occurrence: US)
  Receive Date: 20200121
  Receipt Date: 20200121
  Transmission Date: 20200409
  Serious: No
  Sender: FDA-Public Use
  Company Number: US-JAZZ-2019-US-015226

PATIENT
  Sex: Female

DRUGS (1)
  1. XYREM [Suspect]
     Active Substance: SODIUM OXYBATE
     Indication: PRODUCT USED FOR UNKNOWN INDICATION
     Dosage: FRONT LOAD XYREM DOSE OF 7.5 GRAMS (LARGER FIRST DOSE THAN SECOND)
     Route: 048

REACTIONS (1)
  - Somnolence [Recovering/Resolving]
